FAERS Safety Report 11587438 (Version 6)
Quarter: 2015Q4

REPORT INFORMATION
  Report Type: Report from Study
  Country: BR (occurrence: BR)
  Receive Date: 20151001
  Receipt Date: 20151027
  Transmission Date: 20160304
  Serious: No
  Sender: FDA-Public Use
  Company Number: PHHY2015BR078664

PATIENT
  Sex: Female
  Weight: 61 kg

DRUGS (3)
  1. EXJADE [Suspect]
     Active Substance: DEFERASIROX
     Indication: THALASSAEMIA BETA
     Dosage: ALTERNATING DOSES OF 4 DF ONE DAY AND 5 DF THE OTHER DAY
     Route: 048
  2. INSULIN [Concomitant]
     Active Substance: INSULIN NOS
     Indication: DIABETES MELLITUS
     Route: 065
  3. NPH INSULIN [Concomitant]
     Active Substance: INSULIN BEEF
     Indication: DIABETES MELLITUS
     Route: 065

REACTIONS (2)
  - Haemoglobin decreased [Unknown]
  - Inappropriate schedule of drug administration [Unknown]
